FAERS Safety Report 19991259 (Version 1)
Quarter: 2021Q4

REPORT INFORMATION
  Report Type: Spontaneous
  Country: US (occurrence: US)
  Receive Date: 20211025
  Receipt Date: 20211025
  Transmission Date: 20220303
  Serious: No
  Sender: FDA-Public Use
  Company Number: None

PATIENT
  Age: 34 Year
  Sex: Female
  Weight: 57.15 kg

DRUGS (4)
  1. SPIRONOLACTONE [Suspect]
     Active Substance: SPIRONOLACTONE
     Indication: Acne
     Dosage: ?          QUANTITY:1 TABLET(S);
     Route: 048
     Dates: start: 20210927, end: 20211025
  2. ATOMOXETINE. [Concomitant]
     Active Substance: ATOMOXETINE HYDROCHLORIDE
  3. VYVANSE [Concomitant]
     Active Substance: LISDEXAMFETAMINE DIMESYLATE
  4. SEYSARA [Concomitant]
     Active Substance: SARECYCLINE HYDROCHLORIDE

REACTIONS (4)
  - Mood swings [None]
  - Depression [None]
  - Crying [None]
  - Feeling abnormal [None]

NARRATIVE: CASE EVENT DATE: 20210927
